FAERS Safety Report 10064587 (Version 1)
Quarter: 2014Q2

REPORT INFORMATION
  Report Type: Spontaneous
  Country: US (occurrence: None)
  Receive Date: 20140407
  Receipt Date: 20140407
  Transmission Date: 20141212
  Serious: Yes (Other)
  Sender: FDA-Public Use
  Company Number: None

PATIENT
  Age: 75 Year
  Sex: Female
  Weight: 69.4 kg

DRUGS (2)
  1. LATANOPROST [Suspect]
     Indication: GLAUCOMA
     Dosage: 1 DROP, ONCE DAILY, INTO THE EYE
     Dates: start: 20131101, end: 20140309
  2. SIMBRINZA [Suspect]
     Indication: OPEN ANGLE GLAUCOMA
     Dosage: 1 DROP, TWICE DAILY, INTO THE EYE
     Dates: start: 20131229, end: 20140406

REACTIONS (16)
  - Drug ineffective [None]
  - Conjunctivitis [None]
  - Foreign body sensation in eyes [None]
  - Eyelid oedema [None]
  - Fatigue [None]
  - Somnolence [None]
  - Ocular hyperaemia [None]
  - Eye pruritus [None]
  - Headache [None]
  - Night blindness [None]
  - Dizziness [None]
  - Tinnitus [None]
  - Paraesthesia [None]
  - Pain in jaw [None]
  - Hypoaesthesia [None]
  - Blood pressure increased [None]
